FAERS Safety Report 14072475 (Version 1)
Quarter: 2017Q4

REPORT INFORMATION
  Report Type: Spontaneous
  Country: SE (occurrence: SE)
  Receive Date: 20171011
  Receipt Date: 20171011
  Transmission Date: 20180321
  Serious: Yes (Other)
  Sender: FDA-Public Use
  Company Number: SE-AUROBINDO-AUR-APL-2017-41818

PATIENT
  Age: 59 Year
  Sex: Male

DRUGS (1)
  1. LOSARTAN FILM COATED TABLETS 50 MG [Suspect]
     Active Substance: LOSARTAN
     Indication: PRODUCT USED FOR UNKNOWN INDICATION
     Dosage: 50 MG, UNK
     Route: 065

REACTIONS (3)
  - Fatigue [Recovered/Resolved]
  - Skin fissures [Recovered/Resolved]
  - Dysgeusia [Recovered/Resolved]
